FAERS Safety Report 8491136-7 (Version None)
Quarter: 2012Q2

REPORT INFORMATION
  Report Type: 
  Country: None (occurrence: None)
  Receive Date: 20120627
  Receipt Date: 20120619
  Transmission Date: 20120825
  Serious: Yes (Other)
  Sender: FDA-Public Use
  Company Number: JPI-P-020895

PATIENT
  Age: 34 Year
  Sex: Female
  Weight: 56.6996 kg

DRUGS (19)
  1. MAGNESIUM SULFATE [Concomitant]
  2. SUCRALFATE [Suspect]
     Indication: GASTRITIS
     Dosage: (1 GM)
     Dates: start: 20120529
  3. SUCRALFATE [Suspect]
     Indication: OESOPHAGITIS
     Dosage: (1 GM)
     Dates: start: 20120529
  4. XYREM [Suspect]
     Indication: NARCOLEPSY
     Dosage: SEE IMAGE
     Route: 048
     Dates: start: 20120101
  5. XYREM [Suspect]
     Indication: SOMNOLENCE
     Dosage: SEE IMAGE
     Route: 048
     Dates: start: 20120101
  6. XYREM [Suspect]
     Indication: NARCOLEPSY
     Dosage: SEE IMAGE
     Route: 048
     Dates: start: 20120401, end: 20120101
  7. XYREM [Suspect]
     Indication: SOMNOLENCE
     Dosage: SEE IMAGE
     Route: 048
     Dates: start: 20120401, end: 20120101
  8. XYREM [Suspect]
     Indication: NARCOLEPSY
     Dosage: SEE IMAGE
     Route: 048
     Dates: start: 20120101
  9. XYREM [Suspect]
     Indication: SOMNOLENCE
     Dosage: SEE IMAGE
     Route: 048
     Dates: start: 20120101
  10. XYREM [Suspect]
     Indication: NARCOLEPSY
     Dosage: SEE IMAGE
     Route: 048
     Dates: start: 20120101, end: 20120101
  11. XYREM [Suspect]
     Indication: SOMNOLENCE
     Dosage: SEE IMAGE
     Route: 048
     Dates: start: 20120101, end: 20120101
  12. XYREM [Suspect]
     Indication: NARCOLEPSY
     Dosage: SEE IMAGE
     Route: 048
     Dates: start: 20120411, end: 20120401
  13. XYREM [Suspect]
     Indication: SOMNOLENCE
     Dosage: SEE IMAGE
     Route: 048
     Dates: start: 20120411, end: 20120401
  14. KLONOPIN [Concomitant]
  15. ADDERALL 5 [Concomitant]
  16. VYVANSE [Concomitant]
  17. PROBIOTIC [Concomitant]
  18. WELLBUTRIN [Concomitant]
  19. VITAMIN D [Concomitant]

REACTIONS (16)
  - MIDDLE INSOMNIA [None]
  - OESOPHAGITIS [None]
  - ORTHOSTATIC HYPOTENSION [None]
  - VERTIGO [None]
  - HYPOKALAEMIA [None]
  - POLLAKIURIA [None]
  - DIZZINESS [None]
  - PALPITATIONS [None]
  - LETHARGY [None]
  - FEELING ABNORMAL [None]
  - WEIGHT DECREASED [None]
  - ABDOMINAL PAIN [None]
  - MUSCLE SPASMS [None]
  - NAUSEA [None]
  - DEHYDRATION [None]
  - GASTRITIS [None]
